FAERS Safety Report 14554585 (Version 3)
Quarter: 2018Q1

REPORT INFORMATION
  Report Type: Spontaneous
  Country: JP (occurrence: JP)
  Receive Date: 20180220
  Receipt Date: 20180321
  Transmission Date: 20180509
  Serious: Yes (Other)
  Sender: FDA-Public Use
  Company Number: JP-ALLERGAN-1808307US

PATIENT
  Age: 80 Year
  Sex: Female

DRUGS (11)
  1. LIPIDIL [Concomitant]
     Active Substance: FENOFIBRATE
     Route: 048
  2. RISEDRONATE SODIUM - BP [Suspect]
     Active Substance: RISEDRONATE SODIUM
     Indication: PRODUCT USED FOR UNKNOWN INDICATION
     Dosage: 17.5 MG, UNK
     Route: 048
  3. ACTOS [Suspect]
     Active Substance: PIOGLITAZONE HYDROCHLORIDE
     Indication: PRODUCT USED FOR UNKNOWN INDICATION
     Dosage: 15 MG, QD
     Route: 048
  4. MEDICON [Concomitant]
     Active Substance: DEXTROMETHORPHAN HYDROBROMIDE
     Route: 048
  5. VOLTAREN [Concomitant]
     Active Substance: DICLOFENAC SODIUM
     Route: 054
  6. MEPTIN [Concomitant]
     Active Substance: PROCATEROL HYDROCHLORIDE
  7. MAGNESIUM OXIDE. [Concomitant]
     Active Substance: MAGNESIUM OXIDE
     Route: 048
  8. MERISLON [Concomitant]
     Active Substance: BETAHISTINE MESILATE
  9. TRAMCET [Concomitant]
     Active Substance: ACETAMINOPHEN\TRAMADOL
  10. DIOVAN [Concomitant]
     Active Substance: VALSARTAN
     Route: 048
  11. SPIROPENT [Concomitant]
     Active Substance: CLENBUTEROL HYDROCHLORIDE

REACTIONS (4)
  - Loss of control of legs [Unknown]
  - Fall [Unknown]
  - Asthenia [Unknown]
  - Dizziness [Unknown]

NARRATIVE: CASE EVENT DATE: 20160817
